FAERS Safety Report 8841439 (Version 1)
Quarter: 2012Q4

REPORT INFORMATION
  Report Type: 
  Country: TR (occurrence: TR)
  Receive Date: 20121016
  Receipt Date: 20121016
  Transmission Date: 20130627
  Serious: Yes (Death)
  Sender: FDA-Public Use
  Company Number: TR-BRISTOL-MYERS SQUIBB COMPANY-17023102

PATIENT
  Age: 65 Year
  Sex: Male

DRUGS (2)
  1. ENTECAVIR [Suspect]
     Indication: HEPATIC CIRRHOSIS
     Route: 048
     Dates: start: 20100510, end: 20110201
  2. ENTECAVIR [Suspect]
     Indication: HEPATITIS B
     Route: 048
     Dates: start: 20100510, end: 20110201

REACTIONS (2)
  - Brain neoplasm [Fatal]
  - Hepatic failure [Fatal]
